FAERS Safety Report 5130384-0 (Version None)
Quarter: 2006Q4

REPORT INFORMATION
  Report Type: 
  Country: None (occurrence: None)
  Receive Date: 20061019
  Receipt Date: 20061005
  Transmission Date: 20070319
  Serious: Yes (Other)
  Sender: FDA-Public Use
  Company Number: PHFR2006GB02997

PATIENT
  Age: 74 Year
  Sex: Female

DRUGS (11)
  1. TERBINAFINE [Suspect]
     Indication: FUNGAL INFECTION
     Dosage: 250 MG, QD
     Route: 048
  2. ATENOLOL [Concomitant]
     Dosage: 50 MG, QD
  3. CEPHALEXIN [Concomitant]
     Dosage: 500 MG, QD
  4. ACETAMINOPHEN W/ CODEINE [Concomitant]
     Route: 048
  5. DIPROBASE [Concomitant]
     Route: 061
  6. GAVISCON [Concomitant]
     Route: 048
  7. ISPAGHULA HUSK [Concomitant]
  8. LEVOTHYROXINE SODIUM [Concomitant]
     Dosage: 100 UG, QD
     Route: 048
  9. LEVOTHYROXINE SODIUM [Concomitant]
     Dosage: 25 UG, QD
     Route: 048
  10. LOSARTAN POTASSIUM [Concomitant]
     Dosage: 25 MG, QD
  11. TERBINAFINE HCL [Concomitant]
     Dosage: 250 MG/DAY

REACTIONS (4)
  - ARTHRALGIA [None]
  - LIVER FUNCTION TEST ABNORMAL [None]
  - MALAISE [None]
  - PURPURA [None]
